FAERS Safety Report 6153613-3 (Version None)
Quarter: 2009Q2

REPORT INFORMATION
  Report Type: 
  Country: None (occurrence: None)
  Receive Date: 20090413
  Receipt Date: 20090401
  Transmission Date: 20091009
  Serious: Yes (Death)
  Sender: FDA-Public Use
  Company Number: DK-PFIZER INC-2009195528

PATIENT

DRUGS (1)
  1. TAFIL [Suspect]

REACTIONS (2)
  - COMPLETED SUICIDE [None]
  - DRUG ABUSE [None]
